FAERS Safety Report 23571356 (Version 1)
Quarter: 2024Q1

REPORT INFORMATION
  Report Type: Report from Study
  Country: US (occurrence: US)
  Receive Date: 20240227
  Receipt Date: 20240227
  Transmission Date: 20240410
  Serious: Yes (Other)
  Sender: FDA-Public Use
  Company Number: US-ABBVIE-5651220

PATIENT
  Age: 79 Year
  Sex: Male

DRUGS (2)
  1. DUOPA [Suspect]
     Active Substance: CARBIDOPA\LEVODOPA
     Indication: Parkinson^s disease
     Dosage: LAST ADMIN DATE 02/2024
     Route: 050
     Dates: start: 20240212
  2. DUOPA [Suspect]
     Active Substance: CARBIDOPA\LEVODOPA
     Dosage: DOSE INCREASED
     Route: 050
     Dates: start: 20240214

REACTIONS (3)
  - Surgery [Not Recovered/Not Resolved]
  - On and off phenomenon [Not Recovered/Not Resolved]
  - Incorrect route of product administration [Unknown]

NARRATIVE: CASE EVENT DATE: 20240212
